FAERS Safety Report 15609096 (Version 10)
Quarter: 2019Q2

REPORT INFORMATION
  Report Type: Report from Study
  Country: US (occurrence: US)
  Receive Date: 20181112
  Receipt Date: 20190415
  Transmission Date: 20190711
  Serious: Yes (Hospitalization)
  Sender: FDA-Public Use
  Company Number: US-ACTELION-A-US2018-181674

PATIENT
  Sex: Female
  Weight: 56.69 kg

DRUGS (3)
  1. OPSUMIT [Suspect]
     Active Substance: MACITENTAN
     Indication: PULMONARY ARTERIAL HYPERTENSION
     Dosage: 10 MG, QD
     Route: 048
  2. ADEMPAS [Concomitant]
     Active Substance: RIOCIGUAT
     Dosage: UNK
  3. DILTIAZEM. [Concomitant]
     Active Substance: DILTIAZEM

REACTIONS (17)
  - Haematemesis [Unknown]
  - Productive cough [Unknown]
  - Hospitalisation [Unknown]
  - Aspiration [Unknown]
  - Complication associated with device [Unknown]
  - Myocardial infarction [Unknown]
  - Tonsillectomy [Unknown]
  - Hypoacusis [Unknown]
  - Thromboembolectomy [Unknown]
  - Lymphoma [Unknown]
  - Pneumonia [Unknown]
  - Dyspnoea exertional [Unknown]
  - Lymphadenectomy [Unknown]
  - Mucosal discolouration [Unknown]
  - Middle ear effusion [Unknown]
  - Haemoptysis [Unknown]
  - Dysphagia [Unknown]
